FAERS Safety Report 7326760-8 (Version None)
Quarter: 2011Q1

REPORT INFORMATION
  Report Type: 
  Country: None (occurrence: None)
  Receive Date: 20110302
  Receipt Date: 20110125
  Transmission Date: 20110831
  Serious: Yes (Death)
  Sender: FDA-Public Use
  Company Number: US-BAYER-201019228NA

PATIENT
  Age: 74 Year
  Sex: Male

DRUGS (2)
  1. TRASYLOL [Suspect]
     Indication: ANGIOPLASTY
  2. TRASYLOL [Suspect]
     Indication: CORONARY ARTERY BYPASS
     Route: 042

REACTIONS (4)
  - STRESS [None]
  - INJURY [None]
  - RENAL FAILURE ACUTE [None]
  - PAIN [None]
